FAERS Safety Report 8280689-X (Version None)
Quarter: 2012Q2

REPORT INFORMATION
  Report Type: 
  Country: None (occurrence: None)
  Receive Date: 20120412
  Receipt Date: 20110712
  Transmission Date: 20120825
  Serious: No
  Sender: FDA-Public Use
  Company Number: US-ASTRAZENECA-2011SE41362

PATIENT
  Sex: Female

DRUGS (1)
  1. NEXIUM [Suspect]
     Indication: GASTRIC ULCER
     Route: 048

REACTIONS (4)
  - DYSPEPSIA [None]
  - DRUG INEFFECTIVE [None]
  - GASTRIC ULCER [None]
  - FLATULENCE [None]
